FAERS Safety Report 4654120-7 (Version None)
Quarter: 2005Q2

REPORT INFORMATION
  Report Type: 
  Country: None (occurrence: None)
  Receive Date: 20050504
  Receipt Date: 20050421
  Transmission Date: 20051028
  Serious: Yes (Other)
  Sender: FDA-Public Use
  Company Number: 2005064666

PATIENT
  Age: 50 Year
  Sex: Female

DRUGS (1)
  1. AROMASIN [Suspect]

REACTIONS (4)
  - DYSPNOEA [None]
  - HEADACHE [None]
  - STUPOR [None]
  - TREMOR [None]
